FAERS Safety Report 12000005 (Version 1)
Quarter: 2016Q1

REPORT INFORMATION
  Report Type: Spontaneous
  Country: US (occurrence: US)
  Receive Date: 20160204
  Receipt Date: 20160204
  Transmission Date: 20160526
  Serious: No
  Sender: FDA-Public Use
  Company Number: US-AUROBINDO-AUR-APU-2015-08343

PATIENT
  Sex: Female

DRUGS (2)
  1. MIRTAZAPINE ORALLY DISINTEGRATING TABLETS 15 MG [Suspect]
     Active Substance: MIRTAZAPINE
     Indication: DEPRESSION
     Dosage: HALF TABLET A DAY FOR 6 DAYS
     Route: 048
     Dates: start: 20150912
  2. MIRTAZAPINE ORALLY DISINTEGRATING TABLETS 15 MG [Suspect]
     Active Substance: MIRTAZAPINE
     Indication: ANXIETY

REACTIONS (5)
  - Dysgeusia [Unknown]
  - Wrong technique in product usage process [Unknown]
  - Depression [Not Recovered/Not Resolved]
  - Anxiety [Not Recovered/Not Resolved]
  - Drug ineffective [Not Recovered/Not Resolved]
